FAERS Safety Report 18307198 (Version 1)
Quarter: 2020Q3

REPORT INFORMATION
  Report Type: Spontaneous
  Country: NL (occurrence: NL)
  Receive Date: 20200924
  Receipt Date: 20200924
  Transmission Date: 20201103
  Serious: Yes (Life-Threatening)
  Sender: FDA-Public Use
  Company Number: NL-TEVA-2020-NL-1829413

PATIENT
  Age: 71 Year
  Sex: Male
  Weight: 60 kg

DRUGS (7)
  1. SALBUTAMOL/IPRAT (1?W) VERN 2,5/0,25MG/ML / BRAND NAME NOT SPECIFIED [Concomitant]
     Dosage: ACCORDING TO PRESCRIPTION
  2. ESOMEPRAZOL TABLET MSR 40MG / BRAND NAME NOT SPECIFIED [Concomitant]
     Dosage: 40 MILLIGRAM DAILY; THERAPY START DATE: ASKED BUT UNKNOWN, THERAPY END DATE : ASKED BUT UNKNOWN
  3. NADROPARINE INJVLST  9500IE/ML / BRAND NAME NOT SPECIFIED [Concomitant]
     Dosage: .3 ML DAILY; THERAPY START DATE: ASKED BUT UNKNOWN, THERAPY END DATE : ASKED BUT UNKNOWN
  4. MULTIVITAMINEN [Concomitant]
     Dosage: 1 DOSAGE FORMS DAILY; THERAPY START DATE: ASKED BUT UNKNOWN, THERAPY END DATE : ASKED BUT UNKNOWN
  5. OLANZAPINE TABLET 5MG / BRAND NAME NOT SPECIFIED [Suspect]
     Active Substance: OLANZAPINE
     Indication: RESTLESSNESS
     Dosage: 1 DOSAGE FORMS DAILY;
     Route: 065
     Dates: start: 201402, end: 20140728
  6. THIAMINE INJVLST 100MG/ML / BRAND NAME NOT SPECIFIED [Concomitant]
     Dosage: 1 ML DAILY;  I.M, THERAPY START DATE: ASKED BUT UNKNOWN, THERAPY END DATE : ASKED BUT UNKNOWN
     Route: 030
  7. FYTOMENADION INJVLST 10MG/ML ? NON?CURRENT DRUG / BRAND NAME NOT SPECI [Concomitant]
     Dosage: 1 ML DAILY; THERAPY START DATE: ASKED BUT UNKNOWN, THERAPY END DATE : ASKED BUT UNKNOWN

REACTIONS (1)
  - Catatonia [Recovering/Resolving]

NARRATIVE: CASE EVENT DATE: 20140328
